FAERS Safety Report 10097246 (Version 1)
Quarter: 2014Q2

REPORT INFORMATION
  Report Type: Spontaneous
  Country: US (occurrence: US)
  Receive Date: 20140422
  Receipt Date: 20140422
  Transmission Date: 20141212
  Serious: Yes (Other)
  Sender: FDA-Public Use
  Company Number: US-TEVA-475947USA

PATIENT
  Age: 38 Year
  Sex: Female

DRUGS (12)
  1. COPAXONE [Suspect]
     Indication: MULTIPLE SCLEROSIS
     Dates: end: 201310
  2. VITAMIN D [Concomitant]
     Indication: VITAMIN SUPPLEMENTATION
  3. PROBIOTICS [Concomitant]
     Indication: SUPPLEMENTATION THERAPY
  4. NYSTATIN [Concomitant]
     Indication: PRODUCT USED FOR UNKNOWN INDICATION
  5. PROCTOZONE HC [Concomitant]
     Indication: PRODUCT USED FOR UNKNOWN INDICATION
  6. ESTRACE [Concomitant]
     Indication: HORMONE REPLACEMENT THERAPY
  7. METHADONE [Concomitant]
     Indication: PAIN
  8. KLONOPIN [Concomitant]
     Indication: PRODUCT USED FOR UNKNOWN INDICATION
  9. XANAX [Concomitant]
     Indication: PRODUCT USED FOR UNKNOWN INDICATION
  10. PROMETHAZINE [Concomitant]
     Indication: NAUSEA
  11. THORAZINE [Concomitant]
     Indication: NAUSEA
  12. BELLADONNA [Concomitant]
     Indication: HORMONE REPLACEMENT THERAPY

REACTIONS (6)
  - Drug hypersensitivity [Recovered/Resolved]
  - Lip swelling [Recovered/Resolved]
  - Mouth swelling [Recovered/Resolved]
  - Gingival swelling [Recovered/Resolved]
  - Rash [Recovered/Resolved]
  - Injection site atrophy [Recovered/Resolved]
